FAERS Safety Report 6508633-3 (Version None)
Quarter: 2009Q4

REPORT INFORMATION
  Report Type: 
  Country: None (occurrence: None)
  Receive Date: 20091221
  Receipt Date: 20091210
  Transmission Date: 20100525
  Serious: Yes (Other)
  Sender: FDA-Public Use
  Company Number: US-ELI_LILLY_AND_COMPANY-US200911004901

PATIENT
  Sex: Female
  Weight: 54.875 kg

DRUGS (1)
  1. EVISTA [Suspect]
     Indication: OSTEOPOROSIS
     Dosage: 60 MG, DAILY (1/D)
     Route: 065
     Dates: start: 20070101, end: 20091101

REACTIONS (3)
  - BREAST CANCER [None]
  - BREAST CANCER STAGE I [None]
  - OEDEMA PERIPHERAL [None]
